FAERS Safety Report 10989475 (Version 1)
Quarter: 2015Q2

REPORT INFORMATION
  Report Type: Spontaneous
  Country: BR (occurrence: BR)
  Receive Date: 20150406
  Receipt Date: 20150406
  Transmission Date: 20150821
  Serious: Yes (Hospitalization, Other)
  Sender: FDA-Public Use
  Company Number: BR-009507513-1504BRA001995

PATIENT
  Age: 88 Year
  Sex: Male
  Weight: 75 kg

DRUGS (16)
  1. AMARYL [Concomitant]
     Active Substance: GLIMEPIRIDE
     Indication: DIABETES MELLITUS
     Dosage: 4 MG, QAM
     Route: 048
     Dates: start: 1974, end: 2014
  2. AMARYL [Concomitant]
     Active Substance: GLIMEPIRIDE
     Indication: DIABETES MELLITUS
     Dosage: 2 MG, QAM
     Route: 048
     Dates: start: 2014
  3. SPIRIVA [Concomitant]
     Active Substance: TIOTROPIUM BROMIDE MONOHYDRATE
     Indication: RESPIRATORY DISORDER
     Dosage: 2 PUFFS, QAM
     Route: 048
     Dates: start: 2012
  4. CARVEDILOL. [Concomitant]
     Active Substance: CARVEDILOL
     Indication: ANTIPLATELET THERAPY
     Dosage: 6.25 MG, BID
     Route: 048
     Dates: start: 2013
  5. GLIFAGE [Concomitant]
     Active Substance: METFORMIN HYDROCHLORIDE
     Indication: DIABETES MELLITUS
     Dosage: 1000 MG, QPM
     Route: 048
     Dates: start: 2014
  6. TRADJENTA [Concomitant]
     Active Substance: LINAGLIPTIN
     Indication: DIABETES MELLITUS
     Dosage: 5 MG, QAM
     Route: 048
     Dates: start: 2014
  7. ISKETAM [Concomitant]
     Indication: DIZZINESS
     Dosage: 1 DF, QD
     Route: 048
     Dates: start: 20150401
  8. TAPAZOLE [Concomitant]
     Active Substance: METHIMAZOLE
     Indication: HYPERTHYROIDISM
     Dosage: 5 MG, QD
     Route: 048
     Dates: start: 2005
  9. CHOLECALCIFEROL [Concomitant]
     Active Substance: CHOLECALCIFEROL
     Indication: VITAMIN SUPPLEMENTATION
     Dosage: 1 DF, QW
     Route: 048
     Dates: start: 2012
  10. OMEGA-3 ACIDS [Concomitant]
     Active Substance: OMEGA-3 FATTY ACIDS
     Indication: BLOOD CHOLESTEROL ABNORMAL
     Dosage: 1 DF, BID
     Route: 048
     Dates: start: 2013
  11. XARELTO [Concomitant]
     Active Substance: RIVAROXABAN
     Indication: ANTIPLATELET THERAPY
     Dosage: 10 MG, QD
     Route: 048
     Dates: start: 2013
  12. OSTEONUTRI [Concomitant]
     Indication: PROPHYLAXIS
     Dosage: 1 DF, QD
     Route: 048
     Dates: start: 2014
  13. NASONEX [Suspect]
     Active Substance: MOMETASONE FUROATE
     Indication: NASAL CONGESTION
     Dosage: 1 PUFF IN EACH NOSTRIL AT NIGHT
     Route: 045
     Dates: start: 2011
  14. LASIX [Concomitant]
     Active Substance: FUROSEMIDE
     Indication: PROPHYLAXIS
     Dosage: 40 MG, QAM
     Route: 048
     Dates: start: 1999
  15. BENERVA [Concomitant]
     Active Substance: THIAMINE
     Indication: PROPHYLAXIS
     Dosage: 1 DF, QD
     Route: 048
     Dates: start: 20150331
  16. NARCARICIN [Concomitant]
     Active Substance: BENZBROMARONE
     Indication: BLOOD UREA INCREASED
     Dosage: 100 MG, QD
     Route: 048
     Dates: start: 201501

REACTIONS (4)
  - Heart rate decreased [Recovered/Resolved]
  - Inguinal hernia repair [Recovered/Resolved]
  - Urinary tract infection [Recovering/Resolving]
  - Urea urine increased [Unknown]

NARRATIVE: CASE EVENT DATE: 2013
